FAERS Safety Report 18755193 (Version 1)
Quarter: 2021Q1

REPORT INFORMATION
  Report Type: Spontaneous
  Country: US (occurrence: US)
  Receive Date: 20210118
  Receipt Date: 20210118
  Transmission Date: 20210419
  Serious: Yes (Hospitalization)
  Sender: FDA-Public Use
  Company Number: None

PATIENT
  Age: 21 Year
  Sex: Female
  Weight: 246.6 kg

DRUGS (4)
  1. REMDESIVIR. [Concomitant]
     Active Substance: REMDESIVIR
     Dates: start: 20201207, end: 20201212
  2. BARICITINIB. [Suspect]
     Active Substance: BARICITINIB
     Indication: COVID-19
     Route: 048
     Dates: start: 20201208, end: 20201215
  3. DECADRON [Concomitant]
     Active Substance: DEXAMETHASONE
     Dates: start: 20201207, end: 20201228
  4. HEPARIN [Concomitant]
     Active Substance: HEPARIN SODIUM
     Dates: start: 20201209, end: 20201215

REACTIONS (3)
  - Deep vein thrombosis [None]
  - Infection [None]
  - Streptococcus test positive [None]

NARRATIVE: CASE EVENT DATE: 20201215
